FAERS Safety Report 9853694 (Version 2)
Quarter: 2014Q1

REPORT INFORMATION
  Report Type: Report from Study
  Country: US (occurrence: US)
  Receive Date: 20140129
  Receipt Date: 20140205
  Transmission Date: 20141002
  Serious: Yes (Other)
  Sender: FDA-Public Use
  Company Number: US-PFIZER INC-2014022948

PATIENT
  Age: 12 Year
  Sex: Female

DRUGS (3)
  1. DOXORUBICIN HCL [Suspect]
     Indication: OSTEOSARCOMA
     Dosage: 75 MG/M2, CYCLIC
  2. METHOTREXATE SODIUM [Interacting]
     Indication: OSTEOSARCOMA
     Dosage: UP TO 7.5 G/M2, WEEKLY
  3. VINCRISTINE [Concomitant]
     Indication: OSTEOSARCOMA
     Dosage: WEEKLY

REACTIONS (2)
  - Radiation interaction [Recovered/Resolved]
  - Oesophagitis [Recovered/Resolved]
